FAERS Safety Report 7943785-X (Version None)
Quarter: 2011Q4

REPORT INFORMATION
  Report Type: 
  Country: None (occurrence: None)
  Receive Date: 20111128
  Receipt Date: 20111116
  Transmission Date: 20120403
  Serious: Yes (Other)
  Sender: FDA-Public Use
  Company Number: US-ASTRAZENECA-2008UW20481

PATIENT
  Age: 83 Year
  Sex: Female

DRUGS (3)
  1. ARIMIDEX [Suspect]
     Route: 048
     Dates: start: 20080106
  2. TOPROL-XL [Suspect]
     Route: 048
  3. METAMUCIL-2 [Concomitant]

REACTIONS (3)
  - DIARRHOEA [None]
  - BREAST CANCER [None]
  - ARTHRITIS [None]
